FAERS Safety Report 17434830 (Version 1)
Quarter: 2020Q1

REPORT INFORMATION
  Report Type: Spontaneous
  Country: US (occurrence: US)
  Receive Date: 20200203
  Receipt Date: 20200203
  Transmission Date: 20200409
  Serious: Yes (Hospitalization)
  Sender: FDA-Public Use
  Company Number: None

PATIENT
  Age: 60 Year
  Sex: Male

DRUGS (1)
  1. VALPROIC ACID (VALPROIC ACID 250MG/5ML SOLN, ORAL) [Suspect]
     Active Substance: VALPROIC ACID
     Indication: SEIZURE
     Route: 048
     Dates: start: 20190730, end: 20190807

REACTIONS (4)
  - Mental status changes [None]
  - Lactic acidosis [None]
  - Restlessness [None]
  - Hyperammonaemic encephalopathy [None]

NARRATIVE: CASE EVENT DATE: 20190807
